FAERS Safety Report 4912425-6 (Version None)
Quarter: 2006Q1

REPORT INFORMATION
  Report Type: 
  Country: None (occurrence: None)
  Receive Date: 20060215
  Receipt Date: 20050310
  Transmission Date: 20060701
  Serious: No
  Sender: FDA-Public Use
  Company Number: US-GLAXOSMITHKLINE-A0549900A

PATIENT
  Age: 52 Year
  Sex: Female

DRUGS (1)
  1. VALTREX [Suspect]
     Dosage: 2G TWICE PER DAY
     Route: 048
     Dates: start: 20050308, end: 20050308

REACTIONS (3)
  - DIZZINESS [None]
  - HEADACHE [None]
  - SWELLING FACE [None]
